FAERS Safety Report 20903400 (Version 1)
Quarter: 2022Q2

REPORT INFORMATION
  Report Type: Report from Study
  Country: US (occurrence: US)
  Receive Date: 20220601
  Receipt Date: 20220601
  Transmission Date: 20220720
  Serious: Yes (Death)
  Sender: FDA-Public Use
  Company Number: US-ABBVIE-22K-163-4416677-00

PATIENT
  Sex: Male
  Weight: 68 kg

DRUGS (1)
  1. CREON [Suspect]
     Active Substance: PANCRELIPASE AMYLASE\PANCRELIPASE LIPASE\PANCRELIPASE PROTEASE
     Indication: Pancreatic carcinoma
     Dosage: TOOK TWO CAPSULE OF CREON WITH MEALS
     Route: 048
     Dates: start: 202107

REACTIONS (1)
  - Neoplasm malignant [Fatal]
